FAERS Safety Report 5432111-6 (Version None)
Quarter: 2007Q3

REPORT INFORMATION
  Report Type: 
  Country: None (occurrence: None)
  Receive Date: 20070830
  Receipt Date: 20070820
  Transmission Date: 20080115
  Serious: Yes (Other)
  Sender: FDA-Public Use
  Company Number: GB-PFIZER INC-2007067178

PATIENT
  Sex: Female

DRUGS (1)
  1. EXUBERA [Suspect]
     Route: 048

REACTIONS (9)
  - ACCIDENTAL EXPOSURE [None]
  - CHEST DISCOMFORT [None]
  - COUGH [None]
  - DYSPNOEA [None]
  - FATIGUE [None]
  - HEADACHE [None]
  - HYPOGLYCAEMIA [None]
  - MALAISE [None]
  - THROAT IRRITATION [None]
